FAERS Safety Report 9270510 (Version 1)
Quarter: 2013Q2

REPORT INFORMATION
  Report Type: Spontaneous
  Country: BR (occurrence: BR)
  Receive Date: 20130503
  Receipt Date: 20130503
  Transmission Date: 20140414
  Serious: Yes (Hospitalization, Other)
  Sender: FDA-Public Use
  Company Number: BR-ASTRAZENECA-2013SE29122

PATIENT
  Age: 64 Year
  Sex: Male

DRUGS (3)
  1. CRESTOR [Suspect]
     Route: 048
     Dates: start: 2008
  2. BRILINTA [Suspect]
     Indication: MYOCARDIAL RUPTURE
     Route: 048
     Dates: start: 201303
  3. GALVUS MET [Concomitant]
     Indication: DIABETES MELLITUS
     Dates: start: 201110

REACTIONS (4)
  - Myocardial infarction [Recovered/Resolved]
  - Diabetes mellitus [Recovering/Resolving]
  - Diarrhoea [Unknown]
  - Abdominal pain upper [Not Recovered/Not Resolved]
